FAERS Safety Report 5947351-7 (Version None)
Quarter: 2008Q4

REPORT INFORMATION
  Report Type: 
  Country: None (occurrence: None)
  Receive Date: 20081110
  Receipt Date: 20081101
  Transmission Date: 20090506
  Serious: Yes (Other)
  Sender: FDA-Public Use
  Company Number: US-PFIZER INC-2008093596

PATIENT
  Sex: Male
  Weight: 83.181 kg

DRUGS (2)
  1. CHANTIX [Suspect]
     Indication: EX-TOBACCO USER
     Dates: start: 20080101
  2. ALL OTHER THERAPEUTIC PRODUCTS [Concomitant]

REACTIONS (5)
  - BLOOD PRESSURE ABNORMAL [None]
  - DYSKINESIA [None]
  - INTENTIONAL DRUG MISUSE [None]
  - MALAISE [None]
  - MUSCLE SPASMS [None]
